FAERS Safety Report 5606883-1 (Version None)
Quarter: 2008Q1

REPORT INFORMATION
  Report Type: 
  Country: None (occurrence: None)
  Receive Date: 20080111
  Receipt Date: 20071109
  Transmission Date: 20080703
  Serious: Yes (Other)
  Sender: FDA-Public Use
  Company Number: HQYWE125804FEB05

PATIENT
  Age: 70 Year
  Sex: Female
  Weight: 54.48 kg

DRUGS (5)
  1. PREMPRO [Suspect]
     Indication: MENOPAUSAL SYMPTOMS
  2. SYNTHROID [Concomitant]
  3. ATROVENT [Concomitant]
  4. FLONASE [Concomitant]
  5. FOSAMAX [Concomitant]

REACTIONS (1)
  - BREAST CANCER [None]
